FAERS Safety Report 8606485-9 (Version None)
Quarter: 2012Q3

REPORT INFORMATION
  Report Type: 
  Country: None (occurrence: None)
  Receive Date: 20120820
  Receipt Date: 20120813
  Transmission Date: 20120928
  Serious: Yes (Congenital Anomaly)
  Sender: FDA-Public Use
  Company Number: GXKR2012DE002611

PATIENT

DRUGS (5)
  1. AMOXICILLIN AND CLAVULANATE POTASSIUM [Concomitant]
     Indication: ABSCESS
     Dosage: MATERNAL DOSE: 375 [MG/D (3X125) ] / 1500 [MG/D (3X500) ]
     Route: 064
  2. FOLIC ACID [Concomitant]
     Dosage: MATERNAL DOSE: 0.4 [MG/D ]
     Route: 064
  3. OTRIVIN [Suspect]
     Dosage: MATERNAL DOSE: UNK, GW0 TO 40.1
     Route: 064
  4. DIPHTHERIA AND TETANUS VACCINE [Concomitant]
     Dosage: MATERNAL DOSE: UNK, GW 6.2
     Route: 064
  5. CETIRIZINE [Suspect]
     Dosage: MATERNAL DOSE: 10 [MG/D ] (GW 0-14)
     Route: 064

REACTIONS (2)
  - ANAL ATRESIA [None]
  - FOETAL EXPOSURE DURING PREGNANCY [None]
